FAERS Safety Report 8978528 (Version 1)
Quarter: 2012Q4

REPORT INFORMATION
  Report Type: 
  Country: US (occurrence: US)
  Receive Date: 20121221
  Receipt Date: 20121221
  Transmission Date: 20130627
  Serious: No
  Sender: FDA-Public Use
  Company Number: US-BIOGENIDEC-2012BI060321

PATIENT
  Sex: Female

DRUGS (3)
  1. TYSABRI [Suspect]
     Indication: MULTIPLE SCLEROSIS
     Route: 042
     Dates: start: 20091023
  2. TIZANIDINE [Concomitant]
     Indication: MUSCLE SPASMS
     Route: 048
     Dates: start: 2008
  3. KLONOPIN [Concomitant]
     Indication: MUSCLE SPASMS
     Route: 048
     Dates: start: 2012

REACTIONS (2)
  - Muscle spasms [Recovered/Resolved]
  - Fatigue [Recovered/Resolved]
